FAERS Safety Report 10904929 (Version 1)
Quarter: 2015Q1

REPORT INFORMATION
  Report Type: Spontaneous
  Country: US (occurrence: US)
  Receive Date: 20150311
  Receipt Date: 20150311
  Transmission Date: 20150721
  Serious: No
  Sender: FDA-Public Use
  Company Number: US-JNJFOC-20150202506

PATIENT
  Age: 72 Year
  Sex: Female
  Weight: 31.75 kg

DRUGS (6)
  1. OMEPRAZOLE. [Concomitant]
     Active Substance: OMEPRAZOLE
     Indication: PSORIATIC ARTHROPATHY
     Route: 065
  2. LOW DOSE ASPIRIN [Concomitant]
     Active Substance: ASPIRIN
     Indication: PSORIATIC ARTHROPATHY
     Route: 065
  3. DURAGESIC [Suspect]
     Active Substance: FENTANYL
     Indication: PAIN
     Route: 062
  4. PREMARIN [Concomitant]
     Active Substance: ESTROGENS, CONJUGATED
     Indication: PSORIATIC ARTHROPATHY
     Route: 065
  5. PROPRANOLOL [Concomitant]
     Active Substance: PROPRANOLOL\PROPRANOLOL HYDROCHLORIDE
     Indication: CARDIAC DISORDER
     Route: 065
  6. NABUMETONE. [Concomitant]
     Active Substance: NABUMETONE
     Indication: PSORIATIC ARTHROPATHY
     Route: 065

REACTIONS (5)
  - Wrong technique in drug usage process [Unknown]
  - Adverse event [Unknown]
  - Product quality issue [Unknown]
  - Product packaging issue [Unknown]
  - Product quality issue [Unknown]

NARRATIVE: CASE EVENT DATE: 20150131
